FAERS Safety Report 15896140 (Version 2)
Quarter: 2019Q1

REPORT INFORMATION
  Report Type: Spontaneous
  Country: US (occurrence: US)
  Receive Date: 20190131
  Receipt Date: 20190212
  Transmission Date: 20190417
  Serious: No
  Sender: FDA-Public Use
  Company Number: US-SA-2019SA026668

PATIENT
  Age: 43 Year
  Sex: Female

DRUGS (1)
  1. PRALUENT [Suspect]
     Active Substance: ALIROCUMAB
     Indication: TYPE IIA HYPERLIPIDAEMIA
     Dosage: 150 MG, QOW
     Route: 058
     Dates: start: 2016

REACTIONS (4)
  - Blood cholesterol increased [Unknown]
  - Injection site pain [Unknown]
  - Therapeutic response decreased [Unknown]
  - Low density lipoprotein increased [Unknown]
